FAERS Safety Report 23636243 (Version 2)
Quarter: 2024Q2

REPORT INFORMATION
  Report Type: Spontaneous
  Country: US (occurrence: None)
  Receive Date: 20240315
  Receipt Date: 20240412
  Transmission Date: 20240716
  Serious: Yes (Hospitalization)
  Sender: FDA-Public Use
  Company Number: 2024A057508

PATIENT
  Sex: Female

DRUGS (1)
  1. SYMBICORT [Suspect]
     Active Substance: BUDESONIDE\FORMOTEROL FUMARATE DIHYDRATE
     Indication: Sinus disorder
     Dosage: 80/4.5 UG;120 INHALATION UNKNOWN AS REQUIRED
     Route: 055

REACTIONS (6)
  - Asthma [Unknown]
  - Oxygen saturation decreased [Unknown]
  - Bronchitis [Unknown]
  - Product use issue [Unknown]
  - Device use issue [Unknown]
  - Therapeutic product effect incomplete [Unknown]
